FAERS Safety Report 22130627 (Version 1)
Quarter: 2023Q1

REPORT INFORMATION
  Report Type: Spontaneous
  Country: US (occurrence: US)
  Receive Date: 20230323
  Receipt Date: 20230323
  Transmission Date: 20230417
  Serious: No
  Sender: FDA-Public Use
  Company Number: US-GSKCCFUS-Case-01657861_AE-93581

PATIENT
  Age: 84 Year
  Sex: Female

DRUGS (1)
  1. BREO ELLIPTA [Suspect]
     Active Substance: FLUTICASONE FUROATE\VILANTEROL TRIFENATATE
     Indication: Product used for unknown indication
     Dosage: 1 PUFF(S), QD 200
     Route: 048
     Dates: start: 20230315, end: 20230316

REACTIONS (4)
  - Nervousness [Unknown]
  - Tremor [Unknown]
  - Ear discomfort [Unknown]
  - Facial discomfort [Unknown]

NARRATIVE: CASE EVENT DATE: 20230315
